FAERS Safety Report 5356949-9 (Version None)
Quarter: 2007Q2

REPORT INFORMATION
  Report Type: 
  Country: None (occurrence: None)
  Receive Date: 20070530
  Receipt Date: 20061116
  Transmission Date: 20071010
  Serious: Yes (Hospitalization)
  Sender: FDA-Public Use
  Company Number: US200608001625

PATIENT
  Age: 31 Year
  Sex: Male
  Weight: 154.2 kg

DRUGS (6)
  1. ZYPREXA [Suspect]
     Indication: HALLUCINATION
     Dosage: 10 MG
     Dates: start: 20020101, end: 20030101
  2. SEROQUEL [Concomitant]
  3. RISPERDAL [Concomitant]
  4. GEODON [Concomitant]
  5. HALDOL SOLUTAB [Concomitant]
  6. DEPAKOTE [Concomitant]

REACTIONS (6)
  - BLOOD TRIGLYCERIDES INCREASED [None]
  - DIABETES MELLITUS [None]
  - HYPERTENSION [None]
  - METABOLIC DISORDER [None]
  - OBESITY [None]
  - TRANSIENT ISCHAEMIC ATTACK [None]
